FAERS Safety Report 4437473-4 (Version None)
Quarter: 2004Q3

REPORT INFORMATION
  Report Type: 
  Country: None (occurrence: None)
  Receive Date: 20040827
  Receipt Date: 20040812
  Transmission Date: 20050211
  Serious: Yes (Hospitalization)
  Sender: FDA-Public Use
  Company Number: A0220402147

PATIENT
  Age: 75 Year
  Sex: Male

DRUGS (7)
  1. STILNOX -  (ZOLPIDEM) - TABLET - 10 MG [Suspect]
     Dosage: ORAL
     Route: 048
     Dates: end: 20040313
  2. MODOPAR (LEVODOPA/BENSERAZIDE) - CAPSULE - 125 MG [Suspect]
     Dosage: 375 MG QD, ORAL
     Route: 048
     Dates: end: 20040313
  3. CEFUROXIME AXETIL [Suspect]
     Dosage: ORAL
     Route: 048
     Dates: start: 20040223, end: 20040308
  4. ZOCOR [Suspect]
     Dosage: ORAL
     Route: 048
     Dates: end: 20040313
  5. LOXAPINE SUCCINATE [Suspect]
     Dosage: 150 MG QD, ORAL
     Route: 048
     Dates: end: 20040313
  6. OMIX - TAMSULOSIN HYDROCHLORIDE) - CAPSULE PR - 0.4 MG [Suspect]
     Dosage: ORAL
     Route: 048
  7. ACETAMINOPHEN [Concomitant]

REACTIONS (2)
  - HEPATITIS [None]
  - HEPATOCELLULAR DAMAGE [None]
